FAERS Safety Report 7304475-X (Version None)
Quarter: 2011Q1

REPORT INFORMATION
  Report Type: 
  Country: None (occurrence: None)
  Receive Date: 20110221
  Receipt Date: 20110216
  Transmission Date: 20110831
  Serious: Yes (Death, Hospitalization, Other)
  Sender: FDA-Public Use
  Company Number: FR-GILEAD-2011-0036636

PATIENT
  Sex: Male

DRUGS (1)
  1. ATRIPLA [Suspect]
     Indication: HIV INFECTION

REACTIONS (4)
  - KAPOSI'S SARCOMA [None]
  - IMMUNE SYSTEM DISORDER [None]
  - MACROPHAGES INCREASED [None]
  - FANCONI SYNDROME ACQUIRED [None]
